FAERS Safety Report 23980984 (Version 1)
Quarter: 2024Q2

REPORT INFORMATION
  Report Type: Report from Study
  Country: ES (occurrence: ES)
  Receive Date: 20240617
  Receipt Date: 20240617
  Transmission Date: 20240717
  Serious: Yes (Hospitalization, Other)
  Sender: FDA-Public Use
  Company Number: ES-TEVA-VS-3208669

PATIENT
  Age: 67 Year
  Sex: Male
  Weight: 83 kg

DRUGS (25)
  1. PACLITAXEL [Suspect]
     Active Substance: PACLITAXEL
     Indication: Lung squamous cell carcinoma stage IV
     Dosage: 200 MILLIGRAM/SQ. METER,1Q3W
     Route: 042
     Dates: start: 20240326, end: 20240417
  2. CARBOPLATIN [Suspect]
     Active Substance: CARBOPLATIN
     Indication: Lung squamous cell carcinoma stage IV
     Dosage: 5 AUC, 1Q3W
     Route: 042
     Dates: start: 20240326, end: 20240417
  3. ATORVASTATIN [Concomitant]
     Active Substance: ATORVASTATIN
  4. CODEINE [Concomitant]
     Active Substance: CODEINE
     Dates: start: 20240201
  5. ONDANSETRON [Concomitant]
     Active Substance: ONDANSETRON
     Dates: start: 20240326
  6. ACETAMINOPHEN [Concomitant]
     Active Substance: ACETAMINOPHEN
     Dates: start: 20240418
  7. METOCLOPRAMIDE [Concomitant]
     Active Substance: METOCLOPRAMIDE
     Dates: start: 20240418, end: 20240419
  8. SODIUM CHLORIDE [Concomitant]
     Active Substance: SODIUM CHLORIDE
     Dates: start: 20240418, end: 20240508
  9. SERUMAR [Concomitant]
     Dates: start: 20240422, end: 20240422
  10. MAGNESIUM [Concomitant]
     Active Substance: MAGNESIUM
     Dates: start: 20240507
  11. POTASSIUM CHLORIDE [Concomitant]
     Active Substance: POTASSIUM CHLORIDE
     Dates: start: 20240505, end: 20240507
  12. POTASSIUM CHLORIDE [Concomitant]
     Active Substance: POTASSIUM CHLORIDE
     Dates: start: 20240506, end: 20240507
  13. PEMBROLIZUMAB [Suspect]
     Active Substance: PEMBROLIZUMAB
     Indication: Lung squamous cell carcinoma stage IV
     Dosage: 1Q3W;
     Route: 042
     Dates: start: 20240326, end: 20240417
  14. ENALAPRIL [Concomitant]
     Active Substance: ENALAPRIL
  15. IBUPROFEN [Concomitant]
     Active Substance: IBUPROFEN
  16. DEXCHLORPHENIRAMINE [Concomitant]
     Active Substance: DEXCHLORPHENIRAMINE
     Dates: start: 20240326
  17. INSULIN NOS [Concomitant]
     Active Substance: INSULIN NOS
     Dates: start: 20240408, end: 20240508
  18. MOXIFLOXACIN [Concomitant]
     Active Substance: MOXIFLOXACIN
     Dates: start: 20240418
  19. METAMIZOLE [Concomitant]
     Active Substance: METAMIZOLE
     Dates: start: 20240418, end: 20240418
  20. PANTOPRAZOLE [Concomitant]
     Active Substance: PANTOPRAZOLE
     Dates: start: 20240502, end: 20240505
  21. TOLVAPTAN [Concomitant]
     Active Substance: TOLVAPTAN
     Dates: start: 20240505
  22. AMLODIPINE [Concomitant]
     Active Substance: AMLODIPINE BESYLATE
     Dates: start: 20240505, end: 20240508
  23. DEXAMETHASONE [Concomitant]
     Active Substance: DEXAMETHASONE
     Dates: start: 20240326
  24. HYDROCORTISONE [Concomitant]
     Active Substance: HYDROCORTISONE\HYDROCORTISONE ACETATE
     Dates: start: 20240408, end: 20240409
  25. OMEPRAZOLE [Concomitant]
     Active Substance: DONEPEZIL HYDROCHLORIDE\OMEPRAZOLE\OMEPRAZOLE MAGNESIUM
     Dates: start: 20240505, end: 20240508

REACTIONS (4)
  - Respiratory tract infection [Recovered/Resolved]
  - Haemophagocytic lymphohistiocytosis [Recovered/Resolved]
  - Cytokine release syndrome [Recovered/Resolved]
  - Atrial flutter [Recovered/Resolved]

NARRATIVE: CASE EVENT DATE: 20240408
